FAERS Safety Report 8220844-8 (Version None)
Quarter: 2012Q1

REPORT INFORMATION
  Report Type: 
  Country: None (occurrence: None)
  Receive Date: 20120320
  Receipt Date: 20120316
  Transmission Date: 20120608
  Serious: Yes (Other)
  Sender: FDA-Public Use
  Company Number: CN-PFIZER INC-2012070408

PATIENT

DRUGS (2)
  1. ACETYLSALICYLIC ACID [Concomitant]
     Dosage: UNK
  2. LIPITOR [Suspect]
     Dosage: UNK
     Route: 048

REACTIONS (2)
  - PARALYSIS [None]
  - ISCHAEMIC STROKE [None]
